FAERS Safety Report 17363494 (Version 3)
Quarter: 2020Q3

REPORT INFORMATION
  Report Type: Report from Study
  Country: US (occurrence: US)
  Receive Date: 20200203
  Receipt Date: 20200709
  Transmission Date: 20201102
  Serious: Yes (Death, Hospitalization)
  Sender: FDA-Public Use
  Company Number: US-ACTELION-A-NJ2019-187553

PATIENT
  Age: 31 Year
  Sex: Female
  Weight: 59.86 kg

DRUGS (5)
  1. SILDENAFIL CITRATE. [Concomitant]
     Active Substance: SILDENAFIL CITRATE
  2. PREDNISONE. [Concomitant]
     Active Substance: PREDNISONE
  3. OPSUMIT [Suspect]
     Active Substance: MACITENTAN
     Indication: PULMONARY ARTERIAL HYPERTENSION
     Dosage: 10 MG, QD
     Route: 048
     Dates: start: 20181206
  4. ORENITRAM [Concomitant]
     Active Substance: TREPROSTINIL
  5. REMODULIN [Concomitant]
     Active Substance: TREPROSTINIL
     Route: 058

REACTIONS (8)
  - Death [Fatal]
  - Cough [Recovered/Resolved]
  - Pulmonary arterial hypertension [Unknown]
  - Dehydration [Recovered/Resolved]
  - Rash [Unknown]
  - Upper respiratory tract infection [Not Recovered/Not Resolved]
  - Nasopharyngitis [Recovered/Resolved]
  - Syncope [Unknown]

NARRATIVE: CASE EVENT DATE: 20200620
